FAERS Safety Report 22679465 (Version 28)
Quarter: 2025Q3

REPORT INFORMATION
  Report Type: Report from Study
  Country: US (occurrence: US)
  Receive Date: 20230707
  Receipt Date: 20250820
  Transmission Date: 20251021
  Serious: Yes (Other)
  Sender: TAKEDA
  Company Number: US-TAKEDA-2022TUS033596

PATIENT
  Age: 43 Year
  Sex: Female
  Weight: 72 kg

DRUGS (43)
  1. HUMAN IMMUNOGLOBULIN G [Suspect]
     Active Substance: HUMAN IMMUNOGLOBULIN G
     Indication: Myotonia
     Dosage: 30 GRAM, Q4WEEKS
  2. HUMAN IMMUNOGLOBULIN G [Suspect]
     Active Substance: HUMAN IMMUNOGLOBULIN G
     Dosage: 140 GRAM, Q3WEEKS
  3. HUMAN IMMUNOGLOBULIN G [Suspect]
     Active Substance: HUMAN IMMUNOGLOBULIN G
     Dosage: 140 GRAM, Q3WEEKS
  4. HUMAN IMMUNOGLOBULIN G [Suspect]
     Active Substance: HUMAN IMMUNOGLOBULIN G
  5. DIPHENHYDRAMINE HYDROCHLORIDE [Concomitant]
     Active Substance: DIPHENHYDRAMINE HYDROCHLORIDE
  6. ACETAMINOPHEN\HYDROCODONE [Concomitant]
     Active Substance: ACETAMINOPHEN\HYDROCODONE
  7. BACLOFEN [Concomitant]
     Active Substance: BACLOFEN
  8. OMEPRAZOLE [Concomitant]
     Active Substance: OMEPRAZOLE
  9. EPINEPHRINE [Concomitant]
     Active Substance: EPINEPHRINE
  10. SODIUM CHLORIDE [Concomitant]
     Active Substance: SODIUM CHLORIDE
  11. LACTULOSE [Concomitant]
     Active Substance: LACTULOSE
  12. DOCUSATE SODIUM [Concomitant]
     Active Substance: DOCUSATE SODIUM
  13. CARBAMAZEPINE [Concomitant]
     Active Substance: CARBAMAZEPINE
  14. CALCIUM\CHOLECALCIFEROL [Concomitant]
     Active Substance: CALCIUM\CHOLECALCIFEROL
  15. NORTRIPTYLINE HYDROCHLORIDE [Concomitant]
     Active Substance: NORTRIPTYLINE HYDROCHLORIDE
  16. BUPRENORPHINE [Concomitant]
     Active Substance: BUPRENORPHINE
  17. AZELASTINE HYDROCHLORIDE\FLUTICASONE PROPIONATE [Concomitant]
     Active Substance: AZELASTINE HYDROCHLORIDE\FLUTICASONE PROPIONATE
  18. METHYLPREDNISOLONE [Concomitant]
     Active Substance: METHYLPREDNISOLONE
  19. SODIUM CHLORIDE [Concomitant]
     Active Substance: SODIUM CHLORIDE
  20. VITAMIN B COMPLEX [Concomitant]
     Active Substance: CYANOCOBALAMIN\DEXPANTHENOL\NIACINAMIDE\PYRIDOXINE HYDROCHLORIDE\RIBOFLAVIN 5^-PHOSPHATE SODIUM\THIA
  21. ALBUTEROL SULFATE [Concomitant]
     Active Substance: ALBUTEROL SULFATE
  22. NAPROXEN [Concomitant]
     Active Substance: NAPROXEN
  23. VITAMIN C [Concomitant]
     Active Substance: ASCORBIC ACID
  24. HEPARIN [Concomitant]
     Active Substance: HEPARIN SODIUM
  25. FISH OIL [Concomitant]
     Active Substance: FISH OIL
  26. MAGNESIUM [Concomitant]
     Active Substance: MAGNESIUM
  27. LIDOCAINE [Concomitant]
     Active Substance: LIDOCAINE
  28. TOPAMAX [Concomitant]
     Active Substance: TOPIRAMATE
  29. CETIRIZINE HYDROCHLORIDE [Concomitant]
     Active Substance: CETIRIZINE HYDROCHLORIDE
  30. TRAZODONE HCL [Concomitant]
     Active Substance: TRAZODONE HYDROCHLORIDE
  31. ACETAMINOPHEN [Concomitant]
     Active Substance: ACETAMINOPHEN
  32. DIETARY SUPPLEMENT [Concomitant]
     Active Substance: DIETARY SUPPLEMENT
  33. NORTRIPTYLINE [Concomitant]
     Active Substance: NORTRIPTYLINE
  34. ALBUTEROL [Concomitant]
     Active Substance: ALBUTEROL
  35. DOCUSATE [Concomitant]
     Active Substance: DOCUSATE
  36. CALCIUM [Concomitant]
     Active Substance: CALCIUM
  37. VITAMIN D [Concomitant]
     Active Substance: VITAMIN D NOS
  38. MIRABEGRON [Concomitant]
     Active Substance: MIRABEGRON
  39. SOLU-MEDROL [Concomitant]
     Active Substance: METHYLPREDNISOLONE SODIUM SUCCINATE
  40. QUETIAPINE FUMARATE [Concomitant]
     Active Substance: QUETIAPINE FUMARATE
  41. SUMATRIPTAN SUCCINATE [Concomitant]
     Active Substance: SUMATRIPTAN SUCCINATE
  42. GLYCOPYRROLATE [Concomitant]
     Active Substance: GLYCOPYRROLATE
  43. DIPHENHYDRAMINE [Concomitant]
     Active Substance: DIPHENHYDRAMINE

REACTIONS (26)
  - Neuropathy peripheral [Unknown]
  - Hallucination [Unknown]
  - Ear infection [Recovered/Resolved]
  - Neuromyotonia [Recovering/Resolving]
  - Diplopia [Unknown]
  - Infusion site irritation [Unknown]
  - Skin disorder [Not Recovered/Not Resolved]
  - Catheter site rash [Recovering/Resolving]
  - Ocular discomfort [Unknown]
  - Product dose omission issue [Unknown]
  - Dermatitis contact [Unknown]
  - Neck pain [Unknown]
  - Infusion site phlebitis [Unknown]
  - Infusion site oedema [Unknown]
  - Insomnia [Unknown]
  - Infusion site extravasation [Unknown]
  - Pain [Recovering/Resolving]
  - Muscle spasms [Unknown]
  - Pain in extremity [Unknown]
  - Paraesthesia [Unknown]
  - Myalgia [Unknown]
  - Arthralgia [Recovering/Resolving]
  - Infusion site pain [Unknown]
  - Fatigue [Recovering/Resolving]
  - Headache [Recovered/Resolved]
  - Nausea [Recovered/Resolved]

NARRATIVE: CASE EVENT DATE: 20220516
